FAERS Safety Report 6785897-2 (Version None)
Quarter: 2010Q2

REPORT INFORMATION
  Report Type: 
  Country: None (occurrence: None)
  Receive Date: 20100622
  Receipt Date: 20100622
  Transmission Date: 20101027
  Serious: No
  Sender: FDA-Public Use
  Company Number: None

PATIENT
  Age: 49 Year
  Sex: Male
  Weight: 74.8435 kg

DRUGS (2)
  1. DYNACIN [Suspect]
     Indication: ROSACEA
     Dosage: 100MG BID PO
     Route: 048
     Dates: start: 20000101, end: 20061101
  2. MINOCYCLINE HCL [Suspect]
     Indication: ROSACEA
     Dosage: 100MG BID PO
     Route: 048
     Dates: start: 20061101, end: 20070610

REACTIONS (7)
  - GAIT DISTURBANCE [None]
  - MOBILITY DECREASED [None]
  - MUSCLE INJURY [None]
  - MUSCLE RUPTURE [None]
  - MUSCULAR WEAKNESS [None]
  - MYALGIA [None]
  - PRODUCT SUBSTITUTION ISSUE [None]
